FAERS Safety Report 10506182 (Version 1)
Quarter: 2014Q4

REPORT INFORMATION
  Report Type: Spontaneous
  Country: US (occurrence: US)
  Receive Date: 20141009
  Receipt Date: 20141009
  Transmission Date: 20150528
  Serious: No
  Sender: FDA-Public Use
  Company Number: US-009507513-1410USA003473

PATIENT
  Age: 59 Year
  Sex: Female

DRUGS (3)
  1. LORATADINE. [Concomitant]
     Active Substance: LORATADINE
     Route: 048
  2. ETS PATCH [Concomitant]
  3. DULERA [Suspect]
     Active Substance: FORMOTEROL FUMARATE DIHYDRATE\MOMETASONE FUROATE
     Indication: ASTHMA
     Dosage: INHALE TWO PUFFS MY MOUTH EVERY TWELVE HOURS
     Route: 055
     Dates: start: 2012

REACTIONS (2)
  - Product physical issue [Unknown]
  - Feeling jittery [Unknown]

NARRATIVE: CASE EVENT DATE: 20141003
